FAERS Safety Report 12395095 (Version 1)
Quarter: 2016Q2

REPORT INFORMATION
  Report Type: Spontaneous
  Country: US (occurrence: US)
  Receive Date: 20160523
  Receipt Date: 20160523
  Transmission Date: 20160815
  Serious: No
  Sender: FDA-Public Use
  Company Number: US-ACTELION-A-US2016-136469

PATIENT
  Age: 58 Year
  Sex: Male

DRUGS (10)
  1. FUROSEMID [Concomitant]
     Active Substance: FUROSEMIDE
  2. LOSARTAN. [Concomitant]
     Active Substance: LOSARTAN
  3. PLAVIX [Concomitant]
     Active Substance: CLOPIDOGREL BISULFATE
  4. OPSUMIT [Suspect]
     Active Substance: MACITENTAN
     Indication: PULMONARY ARTERIAL HYPERTENSION
     Dosage: 10 MG, UNK
     Route: 048
     Dates: start: 20140821
  5. ADCIRCA [Concomitant]
     Active Substance: TADALAFIL
  6. TORSEMIDE. [Concomitant]
     Active Substance: TORSEMIDE
  7. POTASSIUM [Concomitant]
     Active Substance: POTASSIUM
  8. VYTORIN [Concomitant]
     Active Substance: EZETIMIBE\SIMVASTATIN
  9. UPTRAVI [Suspect]
     Active Substance: SELEXIPAG
     Indication: PULMONARY ARTERIAL HYPERTENSION
     Dosage: UNK MCG, UNK
     Route: 048
     Dates: start: 20160504
  10. PANTOPRAZOL [Concomitant]
     Active Substance: PANTOPRAZOLE SODIUM

REACTIONS (2)
  - Pain in jaw [Not Recovered/Not Resolved]
  - Diarrhoea [Not Recovered/Not Resolved]

NARRATIVE: CASE EVENT DATE: 20160504
